FAERS Safety Report 8788061 (Version 1)
Quarter: 2012Q4

REPORT INFORMATION
  Report Type: 
  Country: BR (occurrence: BR)
  Receive Date: 20120914
  Receipt Date: 20120914
  Transmission Date: 20130627
  Serious: Yes (Other)
  Sender: FDA-Public Use
  Company Number: PHHY2012BR079645

PATIENT
  Age: 72 Year
  Sex: Female
  Weight: 68.9 kg

DRUGS (7)
  1. DIOVAN HCT [Suspect]
  2. ATORVASTATIN [Concomitant]
  3. METOPROLOL [Concomitant]
  4. REPAGLINIDE [Concomitant]
     Dosage: 3 mg, daily
  5. METFORMIN [Concomitant]
     Dosage: 2 g, UNK
  6. METFORMIN [Concomitant]
     Dosage: 1 g, UNK
  7. GLICLAZIDE MR [Concomitant]
     Dosage: UNK UKN, UNK

REACTIONS (5)
  - Malaise [Recovering/Resolving]
  - Agitation [Unknown]
  - Mental disorder [Unknown]
  - Glycosylated haemoglobin increased [Recovered/Resolved]
  - Hypoglycaemia [Unknown]
